FAERS Safety Report 10142691 (Version 1)
Quarter: 2014Q2

REPORT INFORMATION
  Report Type: Spontaneous
  Country: TW (occurrence: TW)
  Receive Date: 20140430
  Receipt Date: 20140430
  Transmission Date: 20141212
  Serious: Yes (Other)
  Sender: FDA-Public Use
  Company Number: TW-AMGEN-TWNSP2014031030

PATIENT
  Age: 55 Year
  Sex: Female

DRUGS (6)
  1. ENBREL [Suspect]
     Indication: RHEUMATOID ARTHRITIS
     Dosage: 25 MG, TWICE WEEKLY
     Route: 058
     Dates: start: 201202, end: 20140423
  2. ENBREL [Suspect]
     Dosage: UNK
     Route: 065
  3. ARHEUMA [Concomitant]
     Dosage: 200 MG, EVERY DAY
     Route: 048
  4. PREDNISOLONE [Concomitant]
     Dosage: 5 MG, TWICE A DAY
     Route: 048
  5. ARCOXIA [Concomitant]
     Dosage: 1 DF, EVERY DAY
     Route: 048
  6. HYDROXYCHLOROQUINE [Concomitant]
     Dosage: 400 MG, EVERY DAY
     Route: 048

REACTIONS (2)
  - Arthritis [Not Recovered/Not Resolved]
  - Staphylococcal infection [Unknown]
